FAERS Safety Report 5079269-9 (Version None)
Quarter: 2006Q3

REPORT INFORMATION
  Report Type: 
  Country: None (occurrence: None)
  Receive Date: 20060814
  Receipt Date: 20060802
  Transmission Date: 20061208
  Serious: Yes (Other)
  Sender: FDA-Public Use
  Company Number: KZ-GLAXOSMITHKLINE-B0432994A

PATIENT
  Age: 47 Year
  Sex: Female

DRUGS (1)
  1. PARODONTAX F TOOTHPASTE [Suspect]
     Route: 050

REACTIONS (1)
  - ANGIONEUROTIC OEDEMA [None]
